FAERS Safety Report 9842006 (Version 1)
Quarter: 2013Q4

REPORT INFORMATION
  Report Type: Spontaneous
  Country: US (occurrence: None)
  Receive Date: 20131219
  Receipt Date: 20131219
  Transmission Date: 20140711
  Serious: Yes (Death)
  Sender: FDA-Public Use
  Company Number: 163-20785-13010877

PATIENT
  Age: 61 Year
  Sex: Male
  Weight: 129.28 kg

DRUGS (4)
  1. THALOMID (THALIDOMIDE) (200 MILLIGRAM, CAPSULES) [Suspect]
     Indication: PLASMA CELL LEUKAEMIA
     Dosage: 200 MG, 1 IN 1 D, PO
     Route: 048
     Dates: start: 20121218
  2. ACYCLOVIR (ACICLOVIR) (UNKNOWN) [Concomitant]
  3. DEXAMETHASONE (DEXAMETHASONE) (UNKNOWN) [Concomitant]
  4. BLOOD PRESSURE MEDICATIONS (ANTIHYPERTENSIVES) (UNKNOWN) [Concomitant]

REACTIONS (2)
  - Plasma cell leukaemia [None]
  - Disease progression [None]
